FAERS Safety Report 11467095 (Version 1)
Quarter: 2015Q3

REPORT INFORMATION
  Report Type: Spontaneous
  Country: GB (occurrence: GB)
  Receive Date: 20150908
  Receipt Date: 20150908
  Transmission Date: 20151125
  Serious: Yes (Other)
  Sender: FDA-Public Use
  Company Number: GB-ROCHE-1579795

PATIENT
  Sex: Female

DRUGS (1)
  1. HERCEPTIN [Suspect]
     Active Substance: TRASTUZUMAB
     Indication: PRODUCT USED FOR UNKNOWN INDICATION
     Route: 058

REACTIONS (7)
  - Blood pressure increased [Unknown]
  - Pain [Unknown]
  - Insomnia [Unknown]
  - Discomfort [Unknown]
  - Back pain [Unknown]
  - Mass [Unknown]
  - Lymphoedema [Unknown]
